FAERS Safety Report 4650148-1 (Version None)
Quarter: 2005Q2

REPORT INFORMATION
  Report Type: 
  Country: None (occurrence: None)
  Receive Date: 20050502
  Receipt Date: 20050420
  Transmission Date: 20051028
  Serious: Yes (Hospitalization)
  Sender: FDA-Public Use
  Company Number: JP-BRISTOL-MYERS SQUIBB COMPANY-12941498

PATIENT
  Age: 66 Year
  Sex: Female

DRUGS (1)
  1. MITOMYCIN-C BULK POWDER [Suspect]
     Indication: OPEN ANGLE GLAUCOMA
     Route: 061
     Dates: start: 19890202, end: 19890202

REACTIONS (1)
  - PUPILLARY DISORDER [None]
